FAERS Safety Report 25484996 (Version 1)
Quarter: 2025Q2

REPORT INFORMATION
  Report Type: Spontaneous
  Country: US (occurrence: US)
  Receive Date: 20250626
  Receipt Date: 20250626
  Transmission Date: 20250717
  Serious: Yes (Other)
  Sender: RANBAXY
  Company Number: US-SUN PHARMACEUTICAL INDUSTRIES LTD-2025R1-513779

PATIENT
  Age: 27 Year
  Sex: Female

DRUGS (6)
  1. BUPROPION [Suspect]
     Active Substance: BUPROPION
     Indication: Major depression
     Dosage: 300 MILLIGRAM, DAILY
     Route: 065
  2. BUPROPION [Suspect]
     Active Substance: BUPROPION
     Dosage: 450 MILLIGRAM, DAILY
     Route: 065
  3. LITHIUM [Suspect]
     Active Substance: LITHIUM
     Indication: Depression
     Dosage: 750 MILLIGRAM, DAILY
     Route: 065
  4. LITHIUM [Suspect]
     Active Substance: LITHIUM
     Route: 065
  5. FLUOXETINE [Suspect]
     Active Substance: FLUOXETINE HYDROCHLORIDE
     Indication: Major depression
     Dosage: 40 MILLIGRAM, DAILY
     Route: 065
  6. PRAZOSIN [Suspect]
     Active Substance: PRAZOSIN
     Indication: Depression
     Dosage: 5 MILLIGRAM, DAILY
     Route: 065

REACTIONS (3)
  - Exposure during pregnancy [Unknown]
  - Pre-eclampsia [Unknown]
  - Condition aggravated [Unknown]
